FAERS Safety Report 4739898-6 (Version None)
Quarter: 2005Q3

REPORT INFORMATION
  Report Type: 
  Country: None (occurrence: None)
  Receive Date: 20050810
  Receipt Date: 20011119
  Transmission Date: 20060218
  Serious: No
  Sender: FDA-Public Use
  Company Number: US-GLAXOSMITHKLINE-A0355826A

PATIENT
  Age: 79 Year
  Sex: Female

DRUGS (6)
  1. PAXIL [Suspect]
     Indication: ANXIETY
     Route: 048
     Dates: start: 20011116
  2. IMODIUM [Concomitant]
  3. KAOPECTATE [Concomitant]
  4. SUCRALFATE [Concomitant]
  5. EVISTA [Concomitant]
  6. DIAZEPAM [Concomitant]

REACTIONS (9)
  - AGITATION [None]
  - CLUMSINESS [None]
  - DRUG INEFFECTIVE [None]
  - HEADACHE [None]
  - HYPERHIDROSIS [None]
  - INSOMNIA [None]
  - NERVOUSNESS [None]
  - SOMNOLENCE [None]
  - STOMACH DISCOMFORT [None]
